FAERS Safety Report 9024497 (Version 2)
Quarter: 2013Q2

REPORT INFORMATION
  Report Type: Report from Study
  Country: CA (occurrence: CA)
  Receive Date: 20130121
  Receipt Date: 20130424
  Transmission Date: 20140414
  Serious: Yes (Hospitalization)
  Sender: FDA-Public Use
  Company Number: CA-JNJFOC-20130105176

PATIENT
  Age: 25 Year
  Sex: Female
  Weight: 101.15 kg

DRUGS (3)
  1. REMICADE [Suspect]
     Indication: CROHN^S DISEASE
     Route: 042
     Dates: start: 20120403
  2. REMICADE [Suspect]
     Indication: CROHN^S DISEASE
     Route: 042
     Dates: start: 2013
  3. IMURAN [Concomitant]
     Route: 048

REACTIONS (3)
  - Crohn^s disease [Unknown]
  - Hospitalisation [Unknown]
  - Exposure during pregnancy [Recovered/Resolved]
